FAERS Safety Report 20188999 (Version 1)
Quarter: 2021Q4

REPORT INFORMATION
  Report Type: Spontaneous
  Country: US (occurrence: None)
  Receive Date: 20211215
  Receipt Date: 20211215
  Transmission Date: 20220303
  Serious: Yes (Life-Threatening)
  Sender: FDA-Public Use
  Company Number: None

PATIENT
  Age: 38 Year
  Sex: Female
  Weight: 67.05 kg

DRUGS (2)
  1. LORAZEPAM [Suspect]
     Active Substance: LORAZEPAM
     Indication: Insomnia
     Dosage: OTHER ROUTE : IM INJECTION;?
     Route: 050
     Dates: start: 20211122
  2. ZYPREXA [Suspect]
     Active Substance: OLANZAPINE

REACTIONS (2)
  - Loss of consciousness [None]
  - Amnesia [None]

NARRATIVE: CASE EVENT DATE: 20211122
